FAERS Safety Report 9401284 (Version 1)
Quarter: 2013Q3

REPORT INFORMATION
  Report Type: Report from Study
  Country: FR (occurrence: FR)
  Receive Date: 20130715
  Receipt Date: 20130715
  Transmission Date: 20140515
  Serious: No
  Sender: FDA-Public Use
  Company Number: PHHY2013FR073016

PATIENT
  Age: 13 Year
  Sex: Female

DRUGS (1)
  1. TOBRAMYCIN INHALATION POWDER [Suspect]
     Indication: CYSTIC FIBROSIS
     Dosage: UNK
     Dates: start: 20121217

REACTIONS (1)
  - Pseudomonas infection [Unknown]
